FAERS Safety Report 4690391-9 (Version None)
Quarter: 2005Q2

REPORT INFORMATION
  Report Type: 
  Country: None (occurrence: None)
  Receive Date: 20050615
  Receipt Date: 20050603
  Transmission Date: 20051028
  Serious: Yes (Hospitalization)
  Sender: FDA-Public Use
  Company Number: US-MERCK-0506USA00992

PATIENT
  Age: 50 Year
  Sex: Male
  Weight: 102 kg

DRUGS (4)
  1. VIOXX [Suspect]
     Indication: OSTEOARTHRITIS
     Route: 048
     Dates: start: 20020201, end: 20040901
  2. ACIPHEX [Concomitant]
     Route: 065
  3. ZETIA [Concomitant]
     Route: 065
  4. BENTYL [Concomitant]
     Route: 065

REACTIONS (12)
  - ACUTE MYOCARDIAL INFARCTION [None]
  - ANGINA UNSTABLE [None]
  - APPENDICITIS [None]
  - CHEST PAIN [None]
  - CORONARY ARTERY DISEASE [None]
  - CORONARY ARTERY RESTENOSIS [None]
  - DIABETES MELLITUS [None]
  - EMOTIONAL DISTRESS [None]
  - HYPERTENSIVE HEART DISEASE [None]
  - SICK SINUS SYNDROME [None]
  - SLEEP APNOEA SYNDROME [None]
  - URINARY RETENTION POSTOPERATIVE [None]
